FAERS Safety Report 11031246 (Version 1)
Quarter: 2015Q2

REPORT INFORMATION
  Report Type: Report from Study
  Country: US (occurrence: US)
  Receive Date: 20150415
  Receipt Date: 20150415
  Transmission Date: 20150821
  Serious: No
  Sender: FDA-Public Use
  Company Number: US-009507513-1504USA002706

PATIENT
  Age: 42 Year
  Sex: Female

DRUGS (1)
  1. IMPLANON [Suspect]
     Active Substance: ETONOGESTREL
     Dosage: UNK
     Route: 059
     Dates: start: 20131219, end: 20150406

REACTIONS (2)
  - Menstruation irregular [Unknown]
  - Medical device removal [Unknown]

NARRATIVE: CASE EVENT DATE: 20150406
